FAERS Safety Report 6898305-8 (Version None)
Quarter: 2010Q3

REPORT INFORMATION
  Report Type: 
  Country: None (occurrence: None)
  Receive Date: 20100802
  Receipt Date: 20071004
  Transmission Date: 20110219
  Serious: No
  Sender: FDA-Public Use
  Company Number: US-PFIZER INC-2007084149

PATIENT
  Sex: Female
  Weight: 102.27 kg

DRUGS (12)
  1. LYRICA [Suspect]
     Indication: DIABETIC COMPLICATION
     Dates: start: 20071003
  2. HUMALOG [Concomitant]
  3. METFORMIN HCL [Concomitant]
  4. LANTUS [Concomitant]
  5. DETROL LA [Concomitant]
  6. LISINOPRIL [Concomitant]
  7. TRIAMTERENE AND HYDROCHLOROTHIAZID ^HARRIS^ [Concomitant]
  8. ATENOLOL [Concomitant]
  9. NIASPAN [Concomitant]
  10. LIPITOR [Concomitant]
  11. MOBIC [Concomitant]
  12. BENICAR [Concomitant]

REACTIONS (4)
  - FLUSHING [None]
  - INSOMNIA [None]
  - PRURITUS [None]
  - SKIN BURNING SENSATION [None]
